FAERS Safety Report 9193282 (Version 1)
Quarter: 2013Q1

REPORT INFORMATION
  Report Type: Spontaneous
  Country: BR (occurrence: BR)
  Receive Date: 20130327
  Receipt Date: 20130327
  Transmission Date: 20140127
  Serious: Yes (Other)
  Sender: FDA-Public Use
  Company Number: PHHY2013BR029424

PATIENT
  Sex: Male

DRUGS (1)
  1. DIOVAN [Suspect]
     Indication: BLOOD PRESSURE
     Dosage: UNK UKN, UNK

REACTIONS (2)
  - Myocardial oedema [Not Recovered/Not Resolved]
  - Cardiac failure [Not Recovered/Not Resolved]
